FAERS Safety Report 5205437-9 (Version None)
Quarter: 2006Q4

REPORT INFORMATION
  Report Type: 
  Country: None (occurrence: None)
  Receive Date: 20061027
  Receipt Date: 20060331
  Transmission Date: 20070319
  Serious: Yes (Hospitalization, Other)
  Sender: FDA-Public Use
  Company Number: HQWYE631304APR06

PATIENT
  Age: 40 Year
  Sex: Female
  Weight: 63.11 kg

DRUGS (5)
  1. PREMARIN [Suspect]
     Indication: OESTROGEN REPLACEMENT THERAPY
     Dosage: 0.45 MG 1X PER 1 DAY, ORAL
     Route: 048
     Dates: start: 20060321
  2. AZITHROMYCIN [Concomitant]
  3. HYDROCODONE BITARTRATE [Concomitant]
  4. HYDROCORTISONE [Concomitant]
  5. IBUPROFEN [Concomitant]

REACTIONS (2)
  - ANAPHYLACTIC REACTION [None]
  - CHEST PAIN [None]
